FAERS Safety Report 14359205 (Version 2)
Quarter: 2018Q1

REPORT INFORMATION
  Report Type: Report from Study
  Country: US (occurrence: US)
  Receive Date: 20180105
  Receipt Date: 20180105
  Transmission Date: 20180509
  Serious: No
  Sender: FDA-Public Use
  Company Number: US-AMGEN-USASL2016084185

PATIENT
  Age: 74 Year
  Sex: Female

DRUGS (1)
  1. REPATHA [Suspect]
     Active Substance: EVOLOCUMAB
     Indication: BLOOD CHOLESTEROL INCREASED
     Dosage: 140 MG, Q2WK
     Route: 065
     Dates: start: 20160418

REACTIONS (5)
  - Dysuria [Unknown]
  - Myalgia [Not Recovered/Not Resolved]
  - Peripheral swelling [Unknown]
  - Rhinorrhoea [Unknown]
  - Micturition urgency [Unknown]

NARRATIVE: CASE EVENT DATE: 2016
